FAERS Safety Report 5603152-0 (Version None)
Quarter: 2008Q1

REPORT INFORMATION
  Report Type: 
  Country: None (occurrence: None)
  Receive Date: 20080125
  Receipt Date: 20080115
  Transmission Date: 20080703
  Serious: Yes (Other)
  Sender: FDA-Public Use
  Company Number: PK-PFIZER INC-2008005774

PATIENT
  Sex: Male

DRUGS (6)
  1. PREGABALIN [Suspect]
     Indication: DIABETIC NEUROPATHY
     Route: 048
     Dates: start: 20080109, end: 20080113
  2. BIPRETERAX [Concomitant]
     Route: 048
  3. ASPIRIN [Concomitant]
     Route: 048
  4. CILOSTAZOL [Concomitant]
     Route: 048
  5. RABEPRAZOLE SODIUM [Concomitant]
     Route: 048
  6. ATORVASTATIN [Concomitant]
     Route: 048

REACTIONS (3)
  - HYPERHIDROSIS [None]
  - HYPOTENSION [None]
  - PALLOR [None]
